FAERS Safety Report 6134256-4 (Version None)
Quarter: 2009Q1

REPORT INFORMATION
  Report Type: 
  Country: None (occurrence: None)
  Receive Date: 20090325
  Receipt Date: 20090310
  Transmission Date: 20090719
  Serious: Yes (Hospitalization)
  Sender: FDA-Public Use
  Company Number: 2009S1004174

PATIENT
  Age: 56 Year
  Sex: Female

DRUGS (4)
  1. ALPRAZOLAM [Suspect]
     Indication: DEPRESSION
     Dosage: 0.50 MG;3 TIMES A DAY;ORAL
     Route: 048
     Dates: start: 20090112, end: 20090122
  2. IXEL /01054401/ (MILNACIPRAN) [Suspect]
     Indication: DEPRESSION
     Dosage: 50 MG;TWICE A DAY;ORAL
     Route: 048
     Dates: start: 20090112, end: 20090122
  3. IMOVANE (ZOPICLONE) [Suspect]
     Indication: DEPRESSION
     Dosage: 1 DF;DAILY;ORAL
     Route: 048
     Dates: start: 20090112, end: 20090122
  4. ENALAPRIL [Concomitant]

REACTIONS (3)
  - CONJUNCTIVITIS [None]
  - FACE OEDEMA [None]
  - HYPERSENSITIVITY [None]
